FAERS Safety Report 11632757 (Version 2)
Quarter: 2015Q4

REPORT INFORMATION
  Report Type: Spontaneous
  Country: US (occurrence: US)
  Receive Date: 20151015
  Receipt Date: 20151019
  Transmission Date: 20160304
  Serious: No
  Sender: FDA-Public Use
  Company Number: US-BAYER-2015-444363

PATIENT
  Age: 48 Year
  Sex: Female
  Weight: 124.72 kg

DRUGS (5)
  1. PHENTERMINE. [Concomitant]
     Active Substance: PHENTERMINE
     Dosage: UNK
  2. ALEVE [Suspect]
     Active Substance: NAPROXEN SODIUM
     Indication: SCIATICA
     Dosage: 2 DF, ONCE
     Route: 048
  3. PAIN STOPPER EXTRA [Suspect]
     Active Substance: ACETAMINOPHEN\ASPIRIN\CAFFEINE\SALICYLAMIDE
     Indication: SCIATICA
     Dosage: 2 DF, QID
     Route: 048
     Dates: start: 2014
  4. ALEVE [Suspect]
     Active Substance: NAPROXEN SODIUM
     Indication: MYALGIA
  5. PAIN STOPPER EXTRA [Suspect]
     Active Substance: ACETAMINOPHEN\ASPIRIN\CAFFEINE\SALICYLAMIDE
     Indication: MYALGIA
     Dosage: 3 DF, SOMETIMES
     Route: 048

REACTIONS (3)
  - Drug ineffective [None]
  - Drug effect delayed [None]
  - Product use issue [None]
